FAERS Safety Report 5267320-2 (Version None)
Quarter: 2007Q1

REPORT INFORMATION
  Report Type: 
  Country: None (occurrence: None)
  Receive Date: 20070316
  Receipt Date: 20070307
  Transmission Date: 20070707
  Serious: Yes (Other)
  Sender: FDA-Public Use
  Company Number: ZA-GLAXOSMITHKLINE-B0462193A

PATIENT

DRUGS (1)
  1. ZYBAN [Suspect]
     Indication: DRUG USE FOR UNKNOWN INDICATION

REACTIONS (5)
  - DISORIENTATION [None]
  - FEELING ABNORMAL [None]
  - HEAD DISCOMFORT [None]
  - MUSCLE INJURY [None]
  - WEIGHT DECREASED [None]
